FAERS Safety Report 6087723-6 (Version None)
Quarter: 2009Q1

REPORT INFORMATION
  Report Type: 
  Country: None (occurrence: None)
  Receive Date: 20090218
  Receipt Date: 20090218
  Transmission Date: 20090719
  Serious: No
  Sender: FDA-Public Use
  Company Number: None

PATIENT
  Age: 57 Year
  Sex: Female
  Weight: 103.4201 kg

DRUGS (1)
  1. ROGAINE (FOR WOMEN) [Suspect]
     Indication: ALOPECIA
     Dosage: SUGGESTED DOSAGE 2 TIMES A DAY
     Dates: start: 20090114, end: 20090205

REACTIONS (3)
  - HYPERACUSIS [None]
  - PALPITATIONS [None]
  - TINNITUS [None]
